FAERS Safety Report 26168077 (Version 1)
Quarter: 2025Q4

REPORT INFORMATION
  Report Type: Spontaneous
  Country: US (occurrence: US)
  Receive Date: 20251217
  Receipt Date: 20251217
  Transmission Date: 20260118
  Serious: No
  Sender: CELLTRION
  Company Number: US-CELLTRION INC.-2025US013268

PATIENT

DRUGS (1)
  1. RITUXIMAB [Suspect]
     Active Substance: RITUXIMAB
     Indication: Bernard-Soulier syndrome
     Dosage: 375 MG/M2 WEEKLY FOR 4 WEEKS

REACTIONS (1)
  - Drug effective for unapproved indication [Unknown]
